FAERS Safety Report 11245639 (Version 1)
Quarter: 2015Q3

REPORT INFORMATION
  Report Type: Spontaneous
  Country: PH (occurrence: PH)
  Receive Date: 20150707
  Receipt Date: 20150707
  Transmission Date: 20151125
  Serious: Yes (Death, Other)
  Sender: FDA-Public Use
  Company Number: PH-MERCK-1507PHL002455

PATIENT
  Sex: Male

DRUGS (1)
  1. JANUVIA [Suspect]
     Active Substance: SITAGLIPTIN PHOSPHATE
     Indication: ROUTINE HEALTH MAINTENANCE
     Dosage: HALF TABLET, ONCE A DAY
     Route: 048

REACTIONS (2)
  - Wrong technique in product usage process [Unknown]
  - Multi-organ failure [Fatal]
